FAERS Safety Report 8862077 (Version 1)
Quarter: 2012Q4

REPORT INFORMATION
  Report Type: 
  Country: CA (occurrence: CA)
  Receive Date: 20121026
  Receipt Date: 20121026
  Transmission Date: 20130627
  Serious: Yes (Hospitalization)
  Sender: FDA-Public Use
  Company Number: CA-MYLANLABS-2012S1021399

PATIENT
  Age: 39 Year
  Sex: Female

DRUGS (9)
  1. NARATRIPTAN [Suspect]
     Indication: HEADACHE
     Route: 065
  2. VENLAFAXINE [Suspect]
     Route: 065
  3. SERTRALINE [Suspect]
     Route: 065
  4. METHADONE [Suspect]
     Route: 065
  5. TOPIRAMATE [Concomitant]
     Route: 065
  6. ATORVASTATIN [Concomitant]
     Route: 065
  7. DYAZIDE [Concomitant]
     Route: 065
  8. QUETIAPINE [Concomitant]
     Route: 065
  9. BACLOFEN [Concomitant]
     Route: 065

REACTIONS (1)
  - Cerebral vasoconstriction [Recovered/Resolved]
